FAERS Safety Report 15268768 (Version 1)
Quarter: 2018Q3

REPORT INFORMATION
  Report Type: Spontaneous
  Country: CN (occurrence: CN)
  Receive Date: 20180813
  Receipt Date: 20180813
  Transmission Date: 20181010
  Serious: Yes (Other)
  Sender: FDA-Public Use
  Company Number: CN-BRISTOL-MYERS SQUIBB COMPANY-BMS-2018-073821

PATIENT
  Age: 64 Year
  Sex: Female
  Weight: 60 kg

DRUGS (1)
  1. GLUCOPHAGE [Suspect]
     Active Substance: METFORMIN HYDROCHLORIDE
     Indication: DIABETES MELLITUS
     Dosage: 1 TAB, QD
     Route: 048
     Dates: start: 20180506, end: 20180520

REACTIONS (1)
  - Cachexia [Recovering/Resolving]

NARRATIVE: CASE EVENT DATE: 20180520
